FAERS Safety Report 8319370 (Version 8)
Quarter: 2013Q4

REPORT INFORMATION
  Report Type: Report from Study
  Country: US (occurrence: US)
  Receive Date: 20120103
  Receipt Date: 20131220
  Transmission Date: 20140711
  Serious: Yes (Hospitalization)
  Sender: FDA-Public Use
  Company Number: US-ACTELION-A-US2011-58883

PATIENT
  Age: 75 Year
  Sex: Female

DRUGS (6)
  1. TRACLEER [Suspect]
     Indication: PULMONARY ARTERIAL HYPERTENSION
     Dosage: UNK
     Route: 048
  2. TRACLEER [Suspect]
     Dosage: UNK
     Route: 048
  3. NITROGLYCERIN [Concomitant]
  4. COUMADIN [Concomitant]
  5. ASPIRIN [Concomitant]
  6. LOVENOX [Concomitant]

REACTIONS (8)
  - Limb operation [Unknown]
  - Road traffic accident [Unknown]
  - Cellulitis [Unknown]
  - Localised infection [Unknown]
  - Back pain [Unknown]
  - Musculoskeletal pain [Unknown]
  - Venous injury [Unknown]
  - Joint injury [Unknown]
